FAERS Safety Report 23924416 (Version 1)
Quarter: 2024Q2

REPORT INFORMATION
  Report Type: Report from Study
  Country: US (occurrence: US)
  Receive Date: 20240531
  Receipt Date: 20240531
  Transmission Date: 20240716
  Serious: Yes (Death)
  Sender: FDA-Public Use
  Company Number: US-BAYER-2024A079354

PATIENT
  Age: 66 Year
  Sex: Female
  Weight: 67.12 kg

DRUGS (19)
  1. ADEMPAS [Suspect]
     Active Substance: RIOCIGUAT
     Indication: Pulmonary arterial hypertension
     Dosage: UNK
     Dates: start: 20230627
  2. ADEMPAS [Suspect]
     Active Substance: RIOCIGUAT
     Indication: Pulmonary arterial hypertension
     Dosage: 2.5 MG, TID
     Route: 048
  3. PREDNISONE [Concomitant]
     Active Substance: PREDNISONE
  4. MIDODRINE HYDROCHLORIDE [Concomitant]
     Active Substance: MIDODRINE HYDROCHLORIDE
  5. ESCITALOPRAM OXALATE [Concomitant]
     Active Substance: ESCITALOPRAM OXALATE
  6. FOLIC ACID [Concomitant]
     Active Substance: FOLIC ACID
  7. XARELTO [Concomitant]
     Active Substance: RIVAROXABAN
  8. HYDROCODONE BITARTRATE [Concomitant]
     Active Substance: HYDROCODONE BITARTRATE
  9. ATENOLOL [Concomitant]
     Active Substance: ATENOLOL
  10. AMIODARONE HYDROCHLORIDE [Concomitant]
     Active Substance: AMIODARONE HYDROCHLORIDE
  11. CALCITONIN SALMON [Concomitant]
     Active Substance: CALCITONIN SALMON
  12. ALENDRONATE SODIUM [Concomitant]
     Active Substance: ALENDRONATE SODIUM
  13. VITAMINS NOS [Concomitant]
     Active Substance: VITAMINS
  14. ARMOUR THYROID [Concomitant]
     Active Substance: THYROID, PORCINE
  15. METOPROLOL SUCCINATE [Concomitant]
     Active Substance: METOPROLOL SUCCINATE
  16. OXYGEN [Concomitant]
     Active Substance: OXYGEN
  17. ACETAMINOPHEN [Concomitant]
     Active Substance: ACETAMINOPHEN
  18. DIGOXIN [Concomitant]
     Active Substance: DIGOXIN
  19. FUROSEMIDE [Concomitant]
     Active Substance: FUROSEMIDE

REACTIONS (1)
  - Death [Fatal]
